FAERS Safety Report 6414512-2 (Version None)
Quarter: 2009Q4

REPORT INFORMATION
  Report Type: 
  Country: None (occurrence: None)
  Receive Date: 20091021
  Receipt Date: 20091007
  Transmission Date: 20100525
  Serious: Yes (Other)
  Sender: FDA-Public Use
  Company Number: 002030

PATIENT

DRUGS (1)
  1. VIMPAT [Suspect]
     Dosage: ORAL
     Route: 048

REACTIONS (1)
  - RENAL TUBULAR NECROSIS [None]
